FAERS Safety Report 10180332 (Version 1)
Quarter: 2014Q2

REPORT INFORMATION
  Report Type: Spontaneous
  Country: US (occurrence: US)
  Receive Date: 20140519
  Receipt Date: 20140519
  Transmission Date: 20141212
  Serious: No
  Sender: FDA-Public Use
  Company Number: US-AMGEN INC.-USASP2013072535

PATIENT
  Age: 79 Year
  Sex: Female

DRUGS (4)
  1. PROLIA [Suspect]
     Indication: OSTEOPOROSIS POSTMENOPAUSAL
     Dosage: UNK
     Route: 065
     Dates: start: 201308
  2. PROLIA [Suspect]
  3. MECLIZINE                          /00072801/ [Concomitant]
  4. ESCITALOPRAM [Concomitant]
     Dosage: 5 MG, UNK

REACTIONS (1)
  - Rash [Unknown]
